FAERS Safety Report 5425224-6 (Version None)
Quarter: 2007Q3

REPORT INFORMATION
  Report Type: 
  Country: None (occurrence: None)
  Receive Date: 20070824
  Receipt Date: 20070822
  Transmission Date: 20080115
  Serious: Yes (Hospitalization)
  Sender: FDA-Public Use
  Company Number: HQWYE796724AUG07

PATIENT
  Age: 50 Year
  Sex: Male
  Weight: 115.77 kg

DRUGS (5)
  1. ALAVERT [Suspect]
     Indication: HYPERSENSITIVITY
     Route: 048
     Dates: start: 20070817, end: 20070817
  2. ALAVERT [Suspect]
     Dosage: UNKNOWN
     Route: 048
     Dates: start: 20070822
  3. LOPRESSOR [Concomitant]
     Dosage: 25 MG (FREQUENCY UNKNOWN)
     Route: 048
  4. ASPIRIN [Concomitant]
     Dosage: UNKNOWN
     Route: 048
  5. PLAVIX [Concomitant]
     Dosage: UNKNOWN
     Route: 048

REACTIONS (2)
  - HEART RATE INCREASED [None]
  - PALPITATIONS [None]
